FAERS Safety Report 9776030 (Version 1)
Quarter: 2013Q4

REPORT INFORMATION
  Report Type: Spontaneous
  Country: US (occurrence: US)
  Receive Date: 20131220
  Receipt Date: 20131220
  Transmission Date: 20140711
  Serious: Yes (Death)
  Sender: FDA-Public Use
  Company Number: US-BRISTOL-MYERS SQUIBB COMPANY-19913599

PATIENT
  Sex: 0

DRUGS (1)
  1. BYETTA [Suspect]
     Dosage: LAST DOSE ON MAR08
     Dates: start: 200606, end: 200803

REACTIONS (1)
  - Pancreatic carcinoma [Fatal]
